FAERS Safety Report 10163644 (Version 2)
Quarter: 2016Q1

REPORT INFORMATION
  Report Type: Report from Study
  Country: DE (occurrence: NL)
  Receive Date: 20140509
  Receipt Date: 20160311
  Transmission Date: 20160525
  Serious: Yes (Hospitalization, Other)
  Sender: FDA-Public Use
  Company Number: DE-ACTELION-A-US2009-98258

PATIENT
  Age: 59 Year
  Sex: Male

DRUGS (19)
  1. FUROSEMIDE. [Concomitant]
     Active Substance: FUROSEMIDE
  2. REVATIO [Concomitant]
     Active Substance: SILDENAFIL CITRATE
  3. ZELITREX [Concomitant]
     Active Substance: VALACYCLOVIR HYDROCHLORIDE
  4. SERETIDE [Concomitant]
     Active Substance: FLUTICASONE FUROATE\SALMETEROL XINAFOATE
  5. PREDNISONE. [Concomitant]
     Active Substance: PREDNISONE
  6. NOVORAPID [Concomitant]
     Active Substance: INSULIN ASPART
  7. COTRIMOXAZOL [Concomitant]
     Active Substance: SULFAMETHOXAZOLE\TRIMETHOPRIM
  8. FLUCONAZOLE. [Concomitant]
     Active Substance: FLUCONAZOLE
  9. OMEPRAZOL [Concomitant]
     Active Substance: OMEPRAZOLE
  10. CHLORTALIDONE [Concomitant]
     Active Substance: CHLORTHALIDONE
  11. VENTAVIS [Suspect]
     Active Substance: ILOPROST
     Indication: PULMONARY ARTERIAL HYPERTENSION
     Dosage: 5 MCG, 6 AMPOULES PER DAY
     Route: 055
     Dates: start: 20090519
  12. ACENOCOUMAROL [Interacting]
     Active Substance: ACENOCOUMAROL
     Indication: PRODUCT USED FOR UNKNOWN INDICATION
     Dosage: 1 MG, UNK
     Route: 065
  13. TRACLEER [Concomitant]
     Active Substance: BOSENTAN
  14. OXYGEN. [Concomitant]
     Active Substance: OXYGEN
  15. ISOPHANE INSULIN [Concomitant]
     Active Substance: INSULIN NOS
  16. VENTAVIS [Interacting]
     Active Substance: ILOPROST
     Dosage: 5 MCG, AMPOULES PER DAY
     Route: 055
     Dates: start: 2010
  17. VENTAVIS [Interacting]
     Active Substance: ILOPROST
     Dosage: 8 TO 9 AMPOULES PER DAY
     Route: 055
     Dates: start: 2010
  18. VENTAVIS [Interacting]
     Active Substance: ILOPROST
     Dosage: 9 AMPOULES PER DAY
     Route: 055
     Dates: start: 2010
  19. SPIRONOLACTONE. [Concomitant]
     Active Substance: SPIRONOLACTONE

REACTIONS (9)
  - Drug interaction [Recovered/Resolved]
  - Haemorrhoids [Unknown]
  - Arrhythmia [Recovered/Resolved]
  - Circulatory collapse [Unknown]
  - Wrong technique in product usage process [Unknown]
  - Intestinal haemorrhage [Recovered/Resolved]
  - Dyspnoea [Unknown]
  - General physical health deterioration [Recovering/Resolving]
  - Fluid retention [Recovering/Resolving]

NARRATIVE: CASE EVENT DATE: 2009
